APPROVED DRUG PRODUCT: HALOPERIDOL
Active Ingredient: HALOPERIDOL LACTATE
Strength: EQ 5MG BASE/ML
Dosage Form/Route: INJECTABLE;INJECTION
Application: A078347 | Product #001 | TE Code: AP
Applicant: MYLAN LABORATORIES LTD
Approved: Sep 14, 2009 | RLD: No | RS: Yes | Type: RX